FAERS Safety Report 23761361 (Version 2)
Quarter: 2024Q2

REPORT INFORMATION
  Report Type: Report from Study
  Country: CA (occurrence: CA)
  Receive Date: 20240419
  Receipt Date: 20240507
  Transmission Date: 20240716
  Serious: Yes (Other)
  Sender: FDA-Public Use
  Company Number: CA-002147023-NVSC2024CA081499

PATIENT
  Age: 30 Year
  Sex: Female

DRUGS (2)
  1. COSENTYX [Suspect]
     Active Substance: SECUKINUMAB
     Indication: Psoriasis
     Dosage: 300 MG, Q3W
     Route: 058
     Dates: start: 20170920, end: 20190428
  2. COSENTYX [Suspect]
     Active Substance: SECUKINUMAB
     Dosage: 300 MG, Q3W
     Route: 058
     Dates: start: 20200624

REACTIONS (13)
  - Immunodeficiency [Unknown]
  - Skin sensitisation [Unknown]
  - Arthralgia [Unknown]
  - Pustular psoriasis [Unknown]
  - Skin lesion [Unknown]
  - Rash macular [Unknown]
  - Pustule [Unknown]
  - Herpes zoster [Unknown]
  - Pain [Unknown]
  - Rash pustular [Unknown]
  - Rash [Unknown]
  - Scab [Unknown]
  - Inappropriate schedule of product administration [Unknown]

NARRATIVE: CASE EVENT DATE: 20170920
